FAERS Safety Report 9501821 (Version 3)
Quarter: 2013Q4

REPORT INFORMATION
  Report Type: Spontaneous
  Country: US (occurrence: None)
  Receive Date: 20130107
  Receipt Date: 20131226
  Transmission Date: 20140711
  Serious: Yes (Other)
  Sender: FDA-Public Use
  Company Number: PHEH2012US022716

PATIENT
  Age: 44 Year
  Sex: Female
  Weight: 47.6 kg

DRUGS (1)
  1. GILENYA [Suspect]
     Indication: MULTIPLE SCLEROSIS
     Dosage: 0.5, QD, ORAL
     Route: 048
     Dates: start: 20121112

REACTIONS (6)
  - Stress [None]
  - Malaise [None]
  - Fatigue [None]
  - Asthenia [None]
  - Malaise [None]
  - Asthenia [None]
